FAERS Safety Report 22113571 (Version 1)
Quarter: 2023Q1

REPORT INFORMATION
  Report Type: Spontaneous
  Country: VN (occurrence: VN)
  Receive Date: 20230320
  Receipt Date: 20230320
  Transmission Date: 20230418
  Serious: Yes (Hospitalization, Other)
  Sender: FDA-Public Use
  Company Number: None

PATIENT
  Age: 66 Year
  Sex: Male

DRUGS (3)
  1. METFORMIN HYDROCHLORIDE [Suspect]
     Active Substance: METFORMIN HYDROCHLORIDE
     Indication: Type 2 diabetes mellitus
     Route: 065
  2. METFORMIN HYDROCHLORIDE [Suspect]
     Active Substance: METFORMIN HYDROCHLORIDE
     Route: 065
  3. SITAGLIPTIN [Concomitant]
     Active Substance: SITAGLIPTIN
     Indication: Type 2 diabetes mellitus
     Route: 065

REACTIONS (3)
  - Acute kidney injury [Recovered/Resolved]
  - Lactic acidosis [Unknown]
  - Intentional product use issue [Unknown]
